FAERS Safety Report 10376461 (Version 1)
Quarter: 2014Q3

REPORT INFORMATION
  Report Type: Spontaneous
  Country: PE (occurrence: PE)
  Receive Date: 20140811
  Receipt Date: 20140811
  Transmission Date: 20150326
  Serious: Yes (Other)
  Sender: FDA-Public Use
  Company Number: PE-PFIZER INC-2014220519

PATIENT
  Age: 47 Year
  Sex: Female

DRUGS (1)
  1. DETRUSITOL SR [Suspect]
     Active Substance: TOLTERODINE TARTRATE
     Dosage: UNK
     Route: 048

REACTIONS (2)
  - Bronchial disorder [Unknown]
  - Pneumonia [Unknown]
